FAERS Safety Report 4646100-2 (Version None)
Quarter: 2005Q2

REPORT INFORMATION
  Report Type: 
  Country: None (occurrence: None)
  Receive Date: 20050427
  Receipt Date: 20050114
  Transmission Date: 20051028
  Serious: Yes (Hospitalization)
  Sender: FDA-Public Use
  Company Number: US-GLAXOSMITHKLINE-A0540799A

PATIENT
  Sex: Female

DRUGS (1)
  1. ZOFRAN [Suspect]
     Indication: HYPEREMESIS GRAVIDARUM
     Route: 042
     Dates: start: 20040101, end: 20040101

REACTIONS (2)
  - DRUG EXPOSURE DURING PREGNANCY [None]
  - VENOUS OCCLUSION [None]
